FAERS Safety Report 6733391-7 (Version None)
Quarter: 2010Q2

REPORT INFORMATION
  Report Type: 
  Country: None (occurrence: None)
  Receive Date: 20100520
  Receipt Date: 20100512
  Transmission Date: 20101027
  Serious: Yes (Hospitalization, Other)
  Sender: FDA-Public Use
  Company Number: US-BAYER-201022412NA

PATIENT
  Age: 32 Year
  Sex: Female

DRUGS (3)
  1. YAZ [Suspect]
     Indication: CONTRACEPTION
     Route: 048
     Dates: start: 20070101, end: 20091021
  2. HUMIRA [Suspect]
     Indication: PSORIASIS
     Dosage: UNIT DOSE: 40 MG/ 0.8 ML/ RECEIVED 80 MG, 1ST LOADING DOSE
     Route: 058
     Dates: start: 20091006, end: 20091006
  3. HUMIRA [Suspect]
     Dosage: UNIT DOSE: 40MG/ 0.8 ML/  RECEIVED ONE DOSE 40 MG
     Route: 058
     Dates: start: 20091001, end: 20091021

REACTIONS (1)
  - PULMONARY EMBOLISM [None]
